FAERS Safety Report 21300086 (Version 1)
Quarter: 2022Q3

REPORT INFORMATION
  Report Type: Report from Study
  Country: GB (occurrence: GB)
  Receive Date: 20220906
  Receipt Date: 20220906
  Transmission Date: 20221027
  Serious: Yes (Life-Threatening, Hospitalization)
  Sender: FDA-Public Use
  Company Number: GB-JNJFOC-20220420099

PATIENT
  Age: 77 Year
  Sex: Female
  Weight: 52.8 kg

DRUGS (3)
  1. IBRUTINIB [Suspect]
     Active Substance: IBRUTINIB
     Indication: Chronic lymphocytic leukaemia
     Route: 048
     Dates: start: 202002
  2. IBRUTINIB [Suspect]
     Active Substance: IBRUTINIB
     Route: 048
     Dates: start: 20220325, end: 20220412
  3. IBRUTINIB [Suspect]
     Active Substance: IBRUTINIB
     Dosage: DOSE SKIPPED
     Route: 048
     Dates: start: 20220413

REACTIONS (1)
  - Interstitial lung disease [Recovering/Resolving]

NARRATIVE: CASE EVENT DATE: 20220405
